FAERS Safety Report 10290730 (Version 1)
Quarter: 2014Q3

REPORT INFORMATION
  Report Type: Spontaneous
  Country: US (occurrence: None)
  Receive Date: 20140708
  Receipt Date: 20140708
  Transmission Date: 20150326
  Serious: No
  Sender: FDA-Public Use
  Company Number: None

PATIENT
  Age: 59 Year
  Sex: Female

DRUGS (1)
  1. FORTEO [Suspect]
     Active Substance: TERIPARATIDE
     Indication: OSTEOPOROSIS
     Dosage: 20MCG  DAILY ORALLY
     Route: 048
     Dates: start: 20130806, end: 20140605

REACTIONS (1)
  - Arthralgia [None]

NARRATIVE: CASE EVENT DATE: 20140605
